FAERS Safety Report 13880675 (Version 1)
Quarter: 2017Q3

REPORT INFORMATION
  Report Type: Spontaneous
  Country: JP (occurrence: JP)
  Receive Date: 20170818
  Receipt Date: 20170818
  Transmission Date: 20171127
  Serious: Yes (Life-Threatening, Other)
  Sender: FDA-Public Use
  Company Number: JP-ACCORD-057137

PATIENT
  Age: 75 Year
  Sex: Male

DRUGS (1)
  1. CISPLATIN. [Suspect]
     Active Substance: CISPLATIN
     Indication: HEPATOCELLULAR CARCINOMA

REACTIONS (3)
  - Coagulation factor deficiency [Unknown]
  - Gastrointestinal haemorrhage [Unknown]
  - Coagulopathy [Recovering/Resolving]
